FAERS Safety Report 11279157 (Version 1)
Quarter: 2015Q3

REPORT INFORMATION
  Report Type: Spontaneous
  Country: US (occurrence: None)
  Receive Date: 20150716
  Receipt Date: 20150716
  Transmission Date: 20151125
  Serious: No
  Sender: FDA-Public Use
  Company Number: None

PATIENT
  Age: 36 Year
  Sex: Female

DRUGS (1)
  1. BUPROPION XL [Suspect]
     Active Substance: BUPROPION
     Indication: DEPRESSION
     Route: 048
     Dates: start: 20150603, end: 20150715

REACTIONS (6)
  - Agitation [None]
  - Irritability [None]
  - Product quality issue [None]
  - Product substitution issue [None]
  - Product coating issue [None]
  - Depression [None]

NARRATIVE: CASE EVENT DATE: 20150630
